FAERS Safety Report 8860623 (Version 2)
Quarter: 2014Q2

REPORT INFORMATION
  Report Type: Report from Study
  Country: CA (occurrence: CA)
  Receive Date: 20121025
  Receipt Date: 20131018
  Transmission Date: 20141212
  Serious: Yes (Other)
  Sender: FDA-Public Use
  Company Number: CA-PFIZER INC-CA-WYE-G03983209

PATIENT
  Age: 38 Year
  Sex: Female
  Weight: 57 kg

DRUGS (2)
  1. ALESSE-28 [Suspect]
     Indication: CONTRACEPTION
     Dosage: 1 DF, 1X/DAY
     Route: 048
     Dates: start: 2000, end: 200105
  2. TEGRETOL [Interacting]
     Indication: EPILEPSY
     Dosage: 600 MG, 1X/DAY
     Route: 048
     Dates: start: 1975

REACTIONS (3)
  - Drug interaction [Recovered/Resolved]
  - Drug ineffective [Unknown]
  - Pregnancy on oral contraceptive [Unknown]
